FAERS Safety Report 4946511-1 (Version None)
Quarter: 2006Q1

REPORT INFORMATION
  Report Type: 
  Country: None (occurrence: None)
  Receive Date: 20060317
  Receipt Date: 20060309
  Transmission Date: 20060701
  Serious: Yes (Other)
  Sender: FDA-Public Use
  Company Number: GB-AVENTIS-200612280GDDC

PATIENT
  Age: 16 Year
  Sex: Female

DRUGS (3)
  1. LANTUS [Suspect]
     Route: 058
  2. LANTUS [Suspect]
     Dosage: DOSE UNIT: UNITS
     Route: 058
  3. HUMALOG [Concomitant]

REACTIONS (4)
  - BLOOD GLUCOSE DECREASED [None]
  - BLOOD GLUCOSE INCREASED [None]
  - COELIAC DISEASE [None]
  - HYPERTHYROIDISM [None]
